FAERS Safety Report 23148290 (Version 1)
Quarter: 2023Q4

REPORT INFORMATION
  Report Type: Spontaneous
  Country: FR (occurrence: FR)
  Receive Date: 20231106
  Receipt Date: 20231106
  Transmission Date: 20240110
  Serious: Yes (Hospitalization)
  Sender: FDA-Public Use
  Company Number: None

PATIENT
  Age: 16 Year
  Sex: Male

DRUGS (3)
  1. AMOXICILLIN [Suspect]
     Active Substance: AMOXICILLIN
     Indication: Ear infection
     Dosage: UNK
     Route: 048
     Dates: start: 20230703, end: 20230703
  2. CODEINE [Suspect]
     Active Substance: CODEINE
     Indication: Ear pain
     Dosage: UNK
     Route: 048
     Dates: start: 20230703, end: 20230703
  3. ACETAMINOPHEN [Suspect]
     Active Substance: ACETAMINOPHEN
     Indication: Ear pain
     Dosage: UNK
     Route: 048
     Dates: start: 20230703, end: 20230703

REACTIONS (2)
  - Pancreatitis acute [Recovered/Resolved]
  - Hypersensitivity [Recovered/Resolved]

NARRATIVE: CASE EVENT DATE: 20230703
